FAERS Safety Report 11329690 (Version 4)
Quarter: 2016Q1

REPORT INFORMATION
  Report Type: Report from Study
  Country: CA (occurrence: CA)
  Receive Date: 20150803
  Receipt Date: 20160122
  Transmission Date: 20160525
  Serious: Yes (Other)
  Sender: FDA-Public Use
  Company Number: CA-ROCHE-ITM201410IM007341

PATIENT
  Age: 76 Year
  Sex: Male
  Weight: 103 kg

DRUGS (13)
  1. ESBRIET [Suspect]
     Active Substance: PIRFENIDONE
     Indication: IDIOPATHIC PULMONARY FIBROSIS
     Route: 048
     Dates: start: 20141021
  2. ESBRIET [Suspect]
     Active Substance: PIRFENIDONE
     Route: 048
     Dates: start: 20141104
  3. WARFARIN [Concomitant]
     Active Substance: WARFARIN
  4. METFORMIN [Concomitant]
     Active Substance: METFORMIN HYDROCHLORIDE
  5. TECTA [Concomitant]
     Active Substance: PANTOPRAZOLE MAGNESIUM
  6. SPIRONOLACTONE. [Concomitant]
     Active Substance: SPIRONOLACTONE
  7. EZETROL [Concomitant]
     Active Substance: EZETIMIBE
  8. DIGOXIN. [Concomitant]
     Active Substance: DIGOXIN
  9. ASA [Concomitant]
     Active Substance: ASPIRIN
  10. ESBRIET [Suspect]
     Active Substance: PIRFENIDONE
     Dosage: 801MG-534MG-801MG
     Route: 048
     Dates: start: 20150716
  11. BISOPROLOL [Concomitant]
     Active Substance: BISOPROLOL
  12. CRESTOR [Concomitant]
     Active Substance: ROSUVASTATIN CALCIUM
  13. ESBRIET [Suspect]
     Active Substance: PIRFENIDONE
     Route: 048
     Dates: start: 20141028

REACTIONS (4)
  - Anxiety [Unknown]
  - Malaise [Unknown]
  - Depression [Not Recovered/Not Resolved]
  - Fatigue [Not Recovered/Not Resolved]

NARRATIVE: CASE EVENT DATE: 20141022
